FAERS Safety Report 24314521 (Version 1)
Quarter: 2024Q3

REPORT INFORMATION
  Report Type: Spontaneous
  Country: US (occurrence: US)
  Receive Date: 20240913
  Receipt Date: 20240913
  Transmission Date: 20241017
  Serious: Yes (Hospitalization, Other)
  Sender: NOVO NORDISK
  Company Number: US-NOVOPROD-1279399

PATIENT
  Age: 57 Year
  Sex: Male

DRUGS (1)
  1. NOVOLIN 70/30 [Suspect]
     Active Substance: INSULIN HUMAN
     Indication: Product used for unknown indication
     Dosage: UNK
     Route: 058
     Dates: start: 201908, end: 202407

REACTIONS (6)
  - Large intestinal obstruction [Unknown]
  - Ketoacidosis [Unknown]
  - Abdominal mass [Unknown]
  - Abdominal infection [Unknown]
  - Nephrolithiasis [Unknown]
  - Hepatic lesion [Unknown]

NARRATIVE: CASE EVENT DATE: 20200101
